FAERS Safety Report 9668003 (Version 3)
Quarter: 2014Q1

REPORT INFORMATION
  Report Type: Spontaneous
  Country: US (occurrence: None)
  Receive Date: 20131101
  Receipt Date: 20140325
  Transmission Date: 20141002
  Serious: Yes (Hospitalization)
  Sender: FDA-Public Use
  Company Number: 2013-US-002214

PATIENT
  Age: 36 Year
  Sex: Female
  Weight: 59.9 kg

DRUGS (10)
  1. XYREM [Suspect]
     Indication: NARCOLEPSY
     Route: 048
     Dates: start: 201204, end: 201205
  2. XYREM [Suspect]
     Indication: NARCOLEPSY
     Route: 048
     Dates: start: 201204, end: 201205
  3. XYREM [Suspect]
     Indication: CATAPLEXY
     Route: 048
     Dates: start: 201204, end: 201205
  4. METHYLPHENIDATE (METHYLPHENIDATE HYDROCHLORIDE) [Concomitant]
  5. OXYCODONE (OXYCODONE HYDROCHLORIDE) (OXYCODONE) [Concomitant]
  6. IBUPROFEN (IBUPROFEN) [Concomitant]
  7. PROCHLORPERAZINE (PROCHLORPERAZINE MALEATE) [Concomitant]
  8. BIOTIN [Concomitant]
  9. CHOLECALCIFEROL [Concomitant]
  10. MULTIVITAMINS (ASCORBIC ACID, ERGOCALCIFEROL, FOLIC ACID, NICOTINAMIDE, PANTHENOL, RETINOL, RIBOFLAVIN, THIAMINE HYDROCHLORIDE) [Concomitant]

REACTIONS (4)
  - Hysterectomy [None]
  - Uterine leiomyoma [None]
  - Weight decreased [None]
  - Dizziness [None]
